FAERS Safety Report 5598097-9 (Version None)
Quarter: 2008Q1

REPORT INFORMATION
  Report Type: 
  Country: None (occurrence: None)
  Receive Date: 20080116
  Receipt Date: 20080102
  Transmission Date: 20080703
  Serious: Yes (Hospitalization, Other)
  Sender: FDA-Public Use
  Company Number: 2007VX002907

PATIENT
  Age: 67 Year
  Sex: Male
  Weight: 78 kg

DRUGS (10)
  1. PERMAX [Suspect]
     Indication: PARKINSON'S DISEASE
     Dosage: 3 MG; QD; PO
     Route: 048
     Dates: start: 20030101, end: 20061201
  2. MADOPAR [Concomitant]
  3. PK-LEVO [Concomitant]
  4. PK-MERZ [Concomitant]
  5. TOREM [Concomitant]
  6. ALDACTONE [Concomitant]
  7. ASPIRIN [Concomitant]
  8. ACERBON ^ICI^ [Concomitant]
  9. NOVODIGAL [Concomitant]
  10. QUERTO [Concomitant]

REACTIONS (4)
  - CONGESTIVE CARDIOMYOPATHY [None]
  - DYSPNOEA [None]
  - EJECTION FRACTION DECREASED [None]
  - VENTRICULAR EXTRASYSTOLES [None]
